FAERS Safety Report 5951315-7 (Version None)
Quarter: 2008Q4

REPORT INFORMATION
  Report Type: 
  Country: None (occurrence: None)
  Receive Date: 20081111
  Receipt Date: 20081111
  Transmission Date: 20090506
  Serious: Yes (Hospitalization)
  Sender: FDA-Public Use
  Company Number: None

PATIENT
  Sex: Female
  Weight: 86 kg

DRUGS (16)
  1. DEXAMETHASONE [Suspect]
     Dosage: 36 MG
  2. LEUCOVORIN CALCIUM [Suspect]
     Dosage: 275 MG
  3. METHOTREXATE [Suspect]
     Dosage: 7 G
  4. PROCARBAZINE [Suspect]
  5. RITUXIMAB (MOAB C2B8 ANTI CD20, CHIMERIC) [Suspect]
  6. VINCRISTINE SULFATE [Suspect]
  7. ARIXTRA [Concomitant]
  8. COUMADIN [Concomitant]
  9. KLONOPIN [Concomitant]
  10. METFORMIN HCL [Concomitant]
  11. MYCELEX [Concomitant]
  12. PERIDEX MOUTHWASH [Concomitant]
  13. PROTONIX [Concomitant]
  14. TOBRADEX [Concomitant]
  15. XANAX [Concomitant]
  16. ZOLOFT [Concomitant]

REACTIONS (3)
  - COUGH [None]
  - LIVER FUNCTION TEST ABNORMAL [None]
  - RASH MACULAR [None]
